FAERS Safety Report 21194913 (Version 2)
Quarter: 2023Q2

REPORT INFORMATION
  Report Type: Spontaneous
  Country: IT (occurrence: IT)
  Receive Date: 20220810
  Receipt Date: 20230612
  Transmission Date: 20230721
  Serious: Yes (Hospitalization, Other)
  Sender: FDA-Public Use
  Company Number: IT-NOVARTISPH-NVSC2022IT178874

PATIENT
  Sex: Female

DRUGS (1)
  1. LEVETIRACETAM [Suspect]
     Active Substance: LEVETIRACETAM
     Indication: Product used for unknown indication
     Dosage: 1000 MG, QD 500 MG 60 FILM-COATED TABLETS
     Route: 065

REACTIONS (9)
  - Seizure [Unknown]
  - Cataract [Unknown]
  - Rheumatoid arthritis [Unknown]
  - Post procedural complication [Unknown]
  - Chalazion [Unknown]
  - Chest pain [Unknown]
  - Pyrexia [Unknown]
  - SARS-CoV-2 test positive [Unknown]
  - Myalgia [Unknown]

NARRATIVE: CASE EVENT DATE: 20211201
